FAERS Safety Report 8803277 (Version 2)
Quarter: 2012Q4

REPORT INFORMATION
  Report Type: Report from Study
  Country: CA (occurrence: CA)
  Receive Date: 20120924
  Receipt Date: 20121003
  Transmission Date: 20130627
  Serious: Yes (Hospitalization, Other)
  Sender: FDA-Public Use
  Company Number: CA-JNJFOC-20120905655

PATIENT
  Age: 52 Year
  Sex: Female
  Weight: 110 kg

DRUGS (6)
  1. REMICADE [Suspect]
     Indication: PSORIATIC ARTHROPATHY
     Dosage: dose:400 (units unspecified)
     Route: 042
     Dates: start: 20110704
  2. METHOTREXATE [Concomitant]
     Route: 065
  3. MULTIVITAMINS [Concomitant]
     Route: 065
  4. ELTROXIN [Concomitant]
     Dosage: 125 (units unspecified)
     Route: 065
  5. TYLENOL 3 [Concomitant]
     Route: 065
  6. FOLIC ACID [Concomitant]
     Route: 065

REACTIONS (2)
  - Gastric bypass [Recovered/Resolved]
  - Weight decreased [Unknown]
